FAERS Safety Report 17619214 (Version 2)
Quarter: 2020Q2

REPORT INFORMATION
  Report Type: Spontaneous
  Country: US (occurrence: US)
  Receive Date: 20200402
  Receipt Date: 20200504
  Transmission Date: 20200713
  Serious: No
  Sender: FDA-Public Use
  Company Number: US-BIOMARINAP-US-2020-128981

PATIENT
  Sex: Female
  Weight: 46 kg

DRUGS (1)
  1. VIMIZIM [Suspect]
     Active Substance: ELOSULFASE ALFA
     Indication: MUCOPOLYSACCHARIDOSIS IV
     Dosage: UNK, QW
     Route: 042
     Dates: start: 20140507

REACTIONS (4)
  - Rhinorrhoea [Unknown]
  - Influenza like illness [Unknown]
  - Product dose omission [Unknown]
  - Pyrexia [Unknown]
